FAERS Safety Report 9370884 (Version 3)
Quarter: 2014Q2

REPORT INFORMATION
  Report Type: Spontaneous
  Country: IT (occurrence: IT)
  Receive Date: 20130626
  Receipt Date: 20140410
  Transmission Date: 20141212
  Serious: Yes (Hospitalization)
  Sender: FDA-Public Use
  Company Number: IT-BRISTOL-MYERS SQUIBB COMPANY-19020965

PATIENT
  Age: 83 Year
  Sex: Male

DRUGS (4)
  1. COUMADIN TABS 5 MG [Suspect]
     Indication: ATRIAL FIBRILLATION
     Route: 048
     Dates: start: 20120101, end: 20130214
  2. RAMIPRIL [Concomitant]
  3. FUROSEMIDE [Concomitant]
  4. LANOXIN [Concomitant]
     Dosage: TABS

REACTIONS (4)
  - Epistaxis [Recovering/Resolving]
  - Loss of consciousness [Recovering/Resolving]
  - Dyspnoea [Recovering/Resolving]
  - Feeling hot [Recovering/Resolving]
